FAERS Safety Report 5045857-9 (Version None)
Quarter: 2006Q2

REPORT INFORMATION
  Report Type: 
  Country: None (occurrence: None)
  Receive Date: 20060629
  Receipt Date: 20060620
  Transmission Date: 20061013
  Serious: Yes (Death)
  Sender: FDA-Public Use
  Company Number: 2006078397

PATIENT
  Age: 42 Year
  Sex: Female

DRUGS (4)
  1. VFEND [Suspect]
     Indication: FUNGAL INFECTION
     Dosage: 400 MG, INTRAVENOUS
     Route: 042
     Dates: start: 20051031, end: 20051217
  2. SULFAMETHOXAZOLE + TRIMETHOPRIM [Concomitant]
  3. MAXIPIME [Concomitant]
  4. TARGOCID [Concomitant]

REACTIONS (2)
  - BACTERIAL INFECTION [None]
  - COLOUR BLINDNESS [None]
